FAERS Safety Report 8286096-8 (Version None)
Quarter: 2012Q2

REPORT INFORMATION
  Report Type: 
  Country: None (occurrence: None)
  Receive Date: 20120416
  Receipt Date: 20120404
  Transmission Date: 20120825
  Serious: No
  Sender: FDA-Public Use
  Company Number: US-BIOGENIDEC-2012BI012072

PATIENT
  Age: 47 Year
  Sex: Female

DRUGS (1)
  1. TYSABRI [Suspect]
     Indication: MULTIPLE SCLEROSIS
     Route: 042
     Dates: start: 20120316

REACTIONS (7)
  - ARTIFICIAL CROWN PROCEDURE [None]
  - MOUTH INJURY [None]
  - ORAL INFECTION [None]
  - ORAL PAIN [None]
  - THERMAL BURN [None]
  - LYMPHADENOPATHY [None]
  - SKIN INFECTION [None]
